FAERS Safety Report 11123991 (Version 1)
Quarter: 2015Q2

REPORT INFORMATION
  Report Type: Spontaneous
  Country: IT (occurrence: IT)
  Receive Date: 20150520
  Receipt Date: 20150520
  Transmission Date: 20150821
  Serious: Yes (Disabling, Other)
  Sender: FDA-Public Use
  Company Number: IT-AMGEN-ITASP2015047028

PATIENT
  Age: 75 Year
  Sex: Male

DRUGS (10)
  1. CACIT                              /00944201/ [Concomitant]
     Dosage: 500 MG, UNK
     Route: 048
  2. ENAPREN [Concomitant]
     Active Substance: ENALAPRIL MALEATE
     Dosage: UNK, SINCE 10 YEARS
  3. DOCETAXEL. [Concomitant]
     Active Substance: DOCETAXEL
     Dosage: UNK, 3 CYCLES
     Dates: start: 20070611, end: 20070725
  4. XGEVA [Suspect]
     Active Substance: DENOSUMAB
     Indication: METASTASES TO BONE
     Dosage: 120 MG, CYCLICAL
     Route: 058
     Dates: start: 20140409, end: 20150408
  5. BICALUTAMIDE. [Concomitant]
     Active Substance: BICALUTAMIDE
     Dosage: 50 MG, UNK
     Dates: start: 201407
  6. PANTORC [Concomitant]
     Active Substance: PANTOPRAZOLE SODIUM
     Dosage: 40 MG, UNK
     Route: 048
  7. ZOMETA [Suspect]
     Active Substance: ZOLEDRONIC ACID
     Indication: PROSTATE CANCER
     Dosage: 4 MG, CYCLICAL
     Route: 042
     Dates: start: 20130109, end: 20140301
  8. ELIGARD [Concomitant]
     Active Substance: LEUPROLIDE ACETATE
     Dosage: UNK
     Dates: start: 201501
  9. JEVTANA [Concomitant]
     Active Substance: CABAZITAXEL
     Dosage: 47 MG, UNK
     Dates: start: 20141016, end: 20150312
  10. DIBASE [Concomitant]
     Active Substance: CHOLECALCIFEROL
     Dosage: 10000 UNK, UNK
     Route: 048

REACTIONS (1)
  - Osteonecrosis of jaw [Unknown]

NARRATIVE: CASE EVENT DATE: 20150301
